FAERS Safety Report 4820256-0 (Version None)
Quarter: 2005Q4

REPORT INFORMATION
  Report Type: 
  Country: None (occurrence: None)
  Receive Date: 20051104
  Receipt Date: 20050815
  Transmission Date: 20060501
  Serious: Yes (Disabling, Other)
  Sender: FDA-Public Use
  Company Number: US-BRISTOL-MYERS SQUIBB COMPANY-13085188

PATIENT
  Age: 66 Year
  Sex: Male

DRUGS (2)
  1. ERBITUX [Suspect]
     Indication: COLON CANCER
     Dosage: FIRST DOSE 400 MG/M2 13-JUN-2005/THEN250 MG/M2IV EVERY 2 WEEKS 'TIL CETUXIMAB D/C'D ON 29-AUG-2005.
     Route: 042
  2. BENADRYL [Concomitant]
     Indication: PREMEDICATION
     Route: 042

REACTIONS (5)
  - LACRIMATION INCREASED [None]
  - OCULAR HYPERAEMIA [None]
  - RASH [None]
  - RASH VESICULAR [None]
  - SKIN EXFOLIATION [None]
